FAERS Safety Report 4431075-1 (Version None)
Quarter: 2004Q3

REPORT INFORMATION
  Report Type: 
  Country: None (occurrence: None)
  Receive Date: 20040817
  Receipt Date: 20040809
  Transmission Date: 20050211
  Serious: Yes (Hospitalization)
  Sender: FDA-Public Use
  Company Number: 2004CG01563

PATIENT
  Age: 98 Year
  Sex: Female
  Weight: 43 kg

DRUGS (10)
  1. OMEPRAZOLE [Suspect]
     Dosage: 20 MG QD PO
     Route: 048
  2. HALDOL [Suspect]
     Dosage: 0.5 MG QD PO
     Route: 048
  3. SECTRAL [Concomitant]
  4. VASTAREL [Concomitant]
  5. LEXOMIL [Concomitant]
  6. STILNOX [Concomitant]
  7. DUPHALAC [Concomitant]
  8. ASPEGIC 325 [Concomitant]
  9. CLARYTINE [Concomitant]
  10. NITROGLYCERIN [Concomitant]

REACTIONS (1)
  - PEMPHIGOID [None]
